FAERS Safety Report 7325310-X (Version None)
Quarter: 2011Q1

REPORT INFORMATION
  Report Type: 
  Country: None (occurrence: None)
  Receive Date: 20110302
  Receipt Date: 20110217
  Transmission Date: 20110831
  Serious: Yes (Death)
  Sender: FDA-Public Use
  Company Number: US-BAYER-2011-016590

PATIENT
  Age: 4 Month
  Sex: Female

DRUGS (2)
  1. MIRENA [Suspect]
  2. MIRENA [Suspect]

REACTIONS (1)
  - DEATH [None]
